FAERS Safety Report 9156073 (Version 1)
Quarter: 2013Q1

REPORT INFORMATION
  Report Type: Spontaneous
  Country: US (occurrence: US)
  Receive Date: 20130311
  Receipt Date: 20130311
  Transmission Date: 20140127
  Serious: No
  Sender: FDA-Public Use
  Company Number: US-PFIZER INC-2013082201

PATIENT
  Sex: Female

DRUGS (1)
  1. LYRICA [Suspect]
     Indication: RESTLESS LEGS SYNDROME
     Dosage: UNK
     Dates: start: 2013

REACTIONS (3)
  - Oedema peripheral [Unknown]
  - Pruritus [Unknown]
  - Off label use [Unknown]
